FAERS Safety Report 10209836 (Version 1)
Quarter: 2014Q2

REPORT INFORMATION
  Report Type: Spontaneous
  Country: US (occurrence: US)
  Receive Date: 20140602
  Receipt Date: 20140602
  Transmission Date: 20141212
  Serious: No
  Sender: FDA-Public Use
  Company Number: US-ASTRAZENECA-2014SE35305

PATIENT
  Age: 64 Year
  Sex: Female
  Weight: 59.9 kg

DRUGS (16)
  1. LISINOPRIL [Suspect]
     Route: 048
     Dates: start: 2011
  2. CRESTOR [Suspect]
     Indication: BLOOD CHOLESTEROL INCREASED
     Route: 048
     Dates: start: 2014, end: 201404
  3. DULOXETINE [Suspect]
     Indication: DEPRESSION
     Route: 048
     Dates: start: 2014, end: 20140414
  4. AMPYRA [Suspect]
     Indication: MULTIPLE SCLEROSIS
     Route: 048
     Dates: start: 20140407, end: 20140414
  5. AMPYRA [Suspect]
     Indication: MULTIPLE SCLEROSIS
     Route: 048
     Dates: start: 201404, end: 201404
  6. HYDROCHLOROTHIAZIDE [Concomitant]
     Dosage: 25MG
  7. METFORMIN [Concomitant]
  8. GABAPENTIN [Concomitant]
  9. VITAMIN D [Concomitant]
  10. COQ10 [Concomitant]
  11. VITAMIN B12 [Concomitant]
  12. ENDOCET [Concomitant]
  13. COPAXONE [Concomitant]
  14. CALTRATE CALCIUM / VITAMIN D [Concomitant]
  15. COMPLETE ULTRA WOMENS HEALTH [Concomitant]
  16. CYMBALTA [Concomitant]

REACTIONS (6)
  - Weight decreased [Recovered/Resolved]
  - Decreased appetite [Recovered/Resolved]
  - Parosmia [Recovered/Resolved]
  - Vomiting [Recovered/Resolved]
  - Nausea [Recovered/Resolved]
  - Intentional product misuse [Recovered/Resolved]
